FAERS Safety Report 11310150 (Version 1)
Quarter: 2015Q3

REPORT INFORMATION
  Report Type: Spontaneous
  Country: KE (occurrence: KE)
  Receive Date: 20150724
  Receipt Date: 20150724
  Transmission Date: 20151125
  Serious: Yes (Life-Threatening, Hospitalization, Other)
  Sender: FDA-Public Use
  Company Number: KE-ELI_LILLY_AND_COMPANY-KE201507007139

PATIENT
  Sex: Male

DRUGS (1)
  1. HUMULIN 70/30 [Suspect]
     Active Substance: INSULIN HUMAN
     Indication: DIABETES MELLITUS
     Route: 065

REACTIONS (4)
  - Renal impairment [Unknown]
  - Visual impairment [Unknown]
  - Blood glucose fluctuation [Unknown]
  - Drug ineffective [Unknown]

NARRATIVE: CASE EVENT DATE: 200905
